FAERS Safety Report 6468716-3 (Version None)
Quarter: 2009Q4

REPORT INFORMATION
  Report Type: 
  Country: None (occurrence: None)
  Receive Date: 20091203
  Receipt Date: 20091127
  Transmission Date: 20100525
  Serious: No
  Sender: FDA-Public Use
  Company Number: CA-ROCHE-671584

PATIENT
  Age: 24 Month
  Sex: Female

DRUGS (2)
  1. TAMIFLU [Suspect]
     Indication: INFLUENZA
     Route: 048
     Dates: start: 20091126
  2. TAMIFLU [Suspect]
     Route: 048
     Dates: start: 20091126

REACTIONS (2)
  - NO ADVERSE EVENT [None]
  - OVERDOSE [None]
